FAERS Safety Report 8589833-8 (Version None)
Quarter: 2012Q3

REPORT INFORMATION
  Report Type: 
  Country: None (occurrence: None)
  Receive Date: 20120813
  Receipt Date: 20120730
  Transmission Date: 20120928
  Serious: Yes (Disabling)
  Sender: FDA-Public Use
  Company Number: US-ENDO PHARMACEUTICALS INC.-DELA20110006

PATIENT
  Sex: Male
  Weight: 63.56 kg

DRUGS (7)
  1. DEXAMETHASONE [Concomitant]
     Indication: ADRENOCORTICAL INSUFFICIENCY ACUTE
     Dosage: UNKNOWN
     Route: 065
  2. DELATESTRYL [Suspect]
     Indication: HYPOGONADISM
     Dosage: UNKNOWN
     Route: 030
     Dates: start: 19660101, end: 20090701
  3. CORTISOL [Concomitant]
     Indication: ADRENOCORTICAL INSUFFICIENCY ACUTE
     Dosage: UNKNOWN
     Route: 065
  4. ASACOL [Concomitant]
     Indication: PRODUCT USED FOR UNKNOWN INDICATION
     Route: 065
  5. THYROID TAB [Concomitant]
     Indication: ADRENAL DISORDER
     Route: 048
  6. FLUDROCORTISONE ACETATE [Concomitant]
     Indication: PRODUCT USED FOR UNKNOWN INDICATION
     Route: 065
  7. PREDNISONE TAB [Concomitant]
     Indication: ADRENAL DISORDER
     Route: 065

REACTIONS (5)
  - BLINDNESS UNILATERAL [None]
  - ISCHAEMIC STROKE [None]
  - DEAFNESS [None]
  - POLYCYTHAEMIA [None]
  - MENINGIOMA BENIGN [None]
